FAERS Safety Report 19155420 (Version 3)
Quarter: 2021Q2

REPORT INFORMATION
  Report Type: Report from Study
  Country: None (occurrence: IL)
  Receive Date: 20210420
  Receipt Date: 20210531
  Transmission Date: 20210717
  Serious: Yes (Hospitalization, Other)
  Sender: FDA-Public Use
  Company Number: IL-ABBVIE-21K-082-3865094-00

PATIENT
  Sex: Female

DRUGS (2)
  1. HUMIRA [Suspect]
     Active Substance: ADALIMUMAB
     Indication: COLITIS ULCERATIVE
     Route: 058
     Dates: start: 20180507
  2. HUMIRA [Suspect]
     Active Substance: ADALIMUMAB
     Dosage: DOSE INCREAED
     Route: 058
     Dates: end: 20190414

REACTIONS (10)
  - Post procedural inflammation [Unknown]
  - Headache [Recovered/Resolved]
  - Syncope [Not Recovered/Not Resolved]
  - Drug ineffective [Not Recovered/Not Resolved]
  - Dizziness [Recovered/Resolved]
  - Surgery [Unknown]
  - Colitis ulcerative [Recovering/Resolving]
  - Asthenia [Recovered/Resolved]
  - Myalgia [Not Recovered/Not Resolved]
  - Stoma creation [Recovered/Resolved]

NARRATIVE: CASE EVENT DATE: 2019
